FAERS Safety Report 5182387-8 (Version None)
Quarter: 2006Q4

REPORT INFORMATION
  Report Type: 
  Country: None (occurrence: None)
  Receive Date: 20061220
  Receipt Date: 20060822
  Transmission Date: 20070319
  Serious: No
  Sender: FDA-Public Use
  Company Number: US-GLAXOSMITHKLINE-A0617645A

PATIENT
  Age: 52 Year
  Sex: Male

DRUGS (4)
  1. COMMIT [Suspect]
     Dates: start: 20050107
  2. COMMIT [Suspect]
     Dates: start: 20050107
  3. NICODERM CQ [Suspect]
  4. NICODERM [Suspect]

REACTIONS (2)
  - DRUG INEFFECTIVE [None]
  - INTENTIONAL DRUG MISUSE [None]
